FAERS Safety Report 10931793 (Version 2)
Quarter: 2015Q2

REPORT INFORMATION
  Report Type: Report from Study
  Country: CA (occurrence: CA)
  Receive Date: 20150319
  Receipt Date: 20150504
  Transmission Date: 20150821
  Serious: Yes (Life-Threatening, Hospitalization)
  Sender: FDA-Public Use
  Company Number: PHHY2014CA166017

PATIENT
  Sex: Male

DRUGS (6)
  1. METOPROLOL [Concomitant]
     Active Substance: METOPROLOL
     Indication: PRODUCT USED FOR UNKNOWN INDICATION
     Dosage: UNK
     Route: 065
  2. CORTISONE [Concomitant]
     Active Substance: CORTISONE\HYDROCORTISONE
     Indication: PRODUCT USED FOR UNKNOWN INDICATION
     Dosage: UNK
     Route: 065
  3. NEORAL [Suspect]
     Active Substance: CYCLOSPORINE
     Dosage: 75 MG, UNK
     Route: 048
  4. APO-RAMIPRIL [Concomitant]
     Active Substance: RAMIPRIL
     Indication: PRODUCT USED FOR UNKNOWN INDICATION
     Dosage: UNK
     Route: 065
  5. NEORAL [Suspect]
     Active Substance: CYCLOSPORINE
     Indication: ECZEMA
     Dosage: 25 MG, UNK
     Route: 048
     Dates: start: 20141119
  6. NEORAL [Suspect]
     Active Substance: CYCLOSPORINE
     Dosage: 50 MG, UNK
     Route: 048

REACTIONS (19)
  - Septic shock [Recovered/Resolved]
  - Hypertension [Unknown]
  - Dyspnoea [Unknown]
  - Confusional state [Unknown]
  - Product use issue [Unknown]
  - Migraine [Unknown]
  - Asthenia [Recovering/Resolving]
  - Drug ineffective [Unknown]
  - Fall [Unknown]
  - Apparent death [Unknown]
  - Insomnia [Unknown]
  - Fatigue [Unknown]
  - Pain [Unknown]
  - Dysphonia [Unknown]
  - Drug intolerance [Unknown]
  - Nausea [Unknown]
  - Blood pressure decreased [Unknown]
  - Ear swelling [Unknown]
  - Bone pain [Unknown]

NARRATIVE: CASE EVENT DATE: 2014
